FAERS Safety Report 4309684-X (Version None)
Quarter: 2004Q1

REPORT INFORMATION
  Report Type: 
  Country: None (occurrence: None)
  Receive Date: 20040301
  Receipt Date: 20040220
  Transmission Date: 20041129
  Serious: Yes (Hospitalization)
  Sender: FDA-Public Use
  Company Number: 200402458

PATIENT
  Age: 83 Year
  Sex: Male

DRUGS (1)
  1. IMODIUM [Suspect]
     Indication: DIARRHOEA

REACTIONS (3)
  - CONSTIPATION [None]
  - FAECALOMA [None]
  - ILEUS PARALYTIC [None]
